FAERS Safety Report 8928035 (Version 1)
Quarter: 2012Q4

REPORT INFORMATION
  Report Type: Spontaneous
  Country: US (occurrence: None)
  Receive Date: 20121126
  Receipt Date: 20121126
  Transmission Date: 20130627
  Serious: Yes (Hospitalization)
  Sender: FDA-Public Use
  Company Number: None

PATIENT
  Age: 81 Year
  Sex: Male
  Weight: 71.5 kg

DRUGS (2)
  1. ACETAMINOPHEN [Concomitant]
  2. TEMSIROLIMUS [Suspect]
     Dates: start: 20120712, end: 20121025

REACTIONS (8)
  - Pneumocystis jiroveci pneumonia [None]
  - Epistaxis [None]
  - Haemoptysis [None]
  - Stomatitis [None]
  - Aphthous stomatitis [None]
  - Pain [None]
  - Blood creatinine increased [None]
  - Hypoxia [None]
